FAERS Safety Report 22156492 (Version 1)
Quarter: 2023Q1

REPORT INFORMATION
  Report Type: Spontaneous
  Country: US (occurrence: US)
  Receive Date: 20230330
  Receipt Date: 20230330
  Transmission Date: 20230418
  Serious: No
  Sender: FDA-Public Use
  Company Number: US-FreseniusKabi-FK202303610

PATIENT

DRUGS (3)
  1. DIPRIVAN [Suspect]
     Active Substance: PROPOFOL
     Indication: Sedation
  2. DIPRIVAN [Suspect]
     Active Substance: PROPOFOL
  3. DIPRIVAN [Suspect]
     Active Substance: PROPOFOL

REACTIONS (2)
  - Therapeutic product effect decreased [Recovered/Resolved]
  - Bronchospasm [Recovered/Resolved]
